FAERS Safety Report 11047359 (Version 1)
Quarter: 2015Q2

REPORT INFORMATION
  Report Type: Spontaneous
  Country: RU (occurrence: RU)
  Receive Date: 20150420
  Receipt Date: 20150420
  Transmission Date: 20150821
  Serious: Yes (Hospitalization)
  Sender: FDA-Public Use
  Company Number: RU-TEVA-556109ISR

PATIENT
  Age: 46 Year
  Sex: Female

DRUGS (2)
  1. TEVACOMB [Suspect]
     Active Substance: FLUTICASONE PROPIONATE\SALMETEROL XINAFOATE
     Route: 055
  2. BUDENIT STERI-NEB [Suspect]
     Active Substance: BUDESONIDE
     Route: 055

REACTIONS (4)
  - Asthma [Recovering/Resolving]
  - Pruritus [Recovering/Resolving]
  - Injection site rash [Recovering/Resolving]
  - Angioedema [Recovering/Resolving]
